FAERS Safety Report 8535014-3 (Version None)
Quarter: 2012Q3

REPORT INFORMATION
  Report Type: 
  Country: None (occurrence: None)
  Receive Date: 20120724
  Receipt Date: 20080502
  Transmission Date: 20120928
  Serious: Yes (Death)
  Sender: FDA-Public Use
  Company Number: CO-PFIZER INC-2012177704

PATIENT
  Age: 81 Year
  Sex: Male

DRUGS (6)
  1. LIPITOR [Suspect]
     Indication: DYSLIPIDAEMIA
     Dosage: 10 MG EVERY 24 HOURS
  2. ISOSORBIDE DINITRATE [Concomitant]
     Dosage: 10 MG EVERY 24 HOURS
  3. FUROSEMIDE [Concomitant]
     Dosage: 40 MG EVERY 24 HOURS
  4. SPIRONOLACTONE [Concomitant]
     Dosage: 25 MG EVERY 24 HOURS
  5. ENALAPRIL MALEATE [Concomitant]
     Dosage: 20 MG EVERY 12 HOURS
  6. DIGOXIN [Concomitant]
     Dosage: 0.25 MG EVERY 24 HOURS

REACTIONS (2)
  - DEATH [None]
  - DYSPNOEA EXERTIONAL [None]
